FAERS Safety Report 12093113 (Version 1)
Quarter: 2016Q1

REPORT INFORMATION
  Report Type: Spontaneous
  Country: US (occurrence: None)
  Receive Date: 20160218
  Receipt Date: 20160218
  Transmission Date: 20160526
  Serious: No
  Sender: FDA-Public Use
  Company Number: None

PATIENT

DRUGS (2)
  1. POTASSIUM CHLORIDE  20 MEQ (PREMIX SOLUTION) POTASSIUM CHLORIDE BAXTER HEALTHCARE CORPORATION [Suspect]
     Active Substance: POTASSIUM CHLORIDE
     Dosage: INJECTION 30 MEQ/PER 50 ML, IV BAG
     Route: 042
  2. POTASSIUM CHLORIDE 10 MEQ (PREMIX SOLUTION) POTASSIUM CHLORIDE BAXTER HEALTHCARE CORPORATION [Suspect]
     Active Substance: POTASSIUM CHLORIDE
     Dosage: INJECTION, 10MEQ PER 50ML, IV BAG
     Route: 042

REACTIONS (2)
  - Product label confusion [None]
  - Product distribution issue [None]
